FAERS Safety Report 7794411-4 (Version None)
Quarter: 2011Q4

REPORT INFORMATION
  Report Type: 
  Country: None (occurrence: None)
  Receive Date: 20111004
  Receipt Date: 20111004
  Transmission Date: 20120403
  Serious: Yes (Other)
  Sender: FDA-Public Use
  Company Number: None

PATIENT
  Age: 15 Year
  Sex: Female
  Weight: 63.502 kg

DRUGS (1)
  1. ABILIFY [Suspect]
     Indication: BIPOLAR I DISORDER
     Dosage: 10MG
     Dates: start: 20110919, end: 20110930

REACTIONS (5)
  - JOINT RANGE OF MOTION DECREASED [None]
  - HEADACHE [None]
  - SOMNOLENCE [None]
  - DROOLING [None]
  - APHASIA [None]
